FAERS Safety Report 9296049 (Version 1)
Quarter: 2013Q2

REPORT INFORMATION
  Report Type: Spontaneous
  Country: US (occurrence: US)
  Receive Date: 20130517
  Receipt Date: 20130517
  Transmission Date: 20140414
  Serious: Yes (Other)
  Sender: FDA-Public Use
  Company Number: US-PFIZER INC-2013150149

PATIENT
  Age: 67 Year
  Sex: Male

DRUGS (3)
  1. CELEBREX [Suspect]
     Dosage: UNK
  2. REVLIMID [Suspect]
     Indication: PLASMA CELL MYELOMA
     Dosage: 25 MG, (25 MG, 21 IN 28 D CYCLE)
     Route: 048
     Dates: start: 201302
  3. ASPIRINE [Suspect]
     Dosage: UNK

REACTIONS (1)
  - Gastrointestinal haemorrhage [Unknown]
